FAERS Safety Report 14205650 (Version 1)
Quarter: 2017Q4

REPORT INFORMATION
  Report Type: Spontaneous
  Country: FR (occurrence: FR)
  Receive Date: 20171120
  Receipt Date: 20171120
  Transmission Date: 20180321
  Serious: Yes (Hospitalization)
  Sender: FDA-Public Use
  Company Number: FR-ABBVIE-17P-056-2169216-00

PATIENT
  Age: 47 Year
  Sex: Male

DRUGS (10)
  1. TERCIAN [Suspect]
     Active Substance: CYAMEMAZINE
     Indication: DRUG DISPENSING ERROR
     Route: 048
     Dates: start: 20091103, end: 20091103
  2. RISPERDAL [Suspect]
     Active Substance: RISPERIDONE
     Indication: DRUG DISPENSING ERROR
     Route: 048
     Dates: start: 20091103, end: 20091103
  3. DEBRIDAT [Concomitant]
     Active Substance: TRIMEBUTINE MALEATE
     Indication: PRODUCT USED FOR UNKNOWN INDICATION
     Route: 065
  4. CRESTOR [Concomitant]
     Active Substance: ROSUVASTATIN CALCIUM
     Indication: PRODUCT USED FOR UNKNOWN INDICATION
     Route: 065
  5. DEPAKOTE [Suspect]
     Active Substance: DIVALPROEX SODIUM
     Indication: DRUG DISPENSING ERROR
     Route: 048
     Dates: start: 20091103, end: 20091103
  6. ZOLOFT [Suspect]
     Active Substance: SERTRALINE HYDROCHLORIDE
     Indication: DRUG DISPENSING ERROR
     Route: 048
     Dates: start: 20091103, end: 20091103
  7. SPAGULAX [Concomitant]
     Active Substance: PLANTAGO OVATA SEED
     Indication: PRODUCT USED FOR UNKNOWN INDICATION
     Route: 065
  8. LOXAPAC [Suspect]
     Active Substance: LOXAPINE SUCCINATE
     Indication: DRUG DISPENSING ERROR
     Route: 048
     Dates: start: 20091103, end: 20091103
  9. PARKINANE [Suspect]
     Active Substance: TRIHEXYPHENIDYL HYDROCHLORIDE
     Indication: DRUG DISPENSING ERROR
     Route: 048
     Dates: start: 20091103, end: 20091103
  10. AERIUS [Concomitant]
     Active Substance: DESLORATADINE
     Indication: PRODUCT USED FOR UNKNOWN INDICATION
     Route: 065

REACTIONS (3)
  - Somnolence [Recovered/Resolved]
  - Bradycardia [Recovered/Resolved]
  - Drug dispensing error [Recovered/Resolved]

NARRATIVE: CASE EVENT DATE: 20091103
